FAERS Safety Report 17133056 (Version 1)
Quarter: 2019Q4

REPORT INFORMATION
  Report Type: Spontaneous
  Country: US (occurrence: US)
  Receive Date: 20191209
  Receipt Date: 20191209
  Transmission Date: 20200122
  Serious: Yes (Disabling)
  Sender: FDA-Public Use
  Company Number: None

PATIENT
  Age: 46 Year
  Sex: Female
  Weight: 62.1 kg

DRUGS (1)
  1. AIMOVIG [Suspect]
     Active Substance: ERENUMAB-AOOE
     Indication: MIGRAINE WITH AURA
     Dosage: ?          OTHER FREQUENCY:MONTHLY;?
     Route: 058

REACTIONS (1)
  - Arthralgia [None]

NARRATIVE: CASE EVENT DATE: 20191015
